FAERS Safety Report 22036027 (Version 2)
Quarter: 2023Q2

REPORT INFORMATION
  Report Type: Report from Study
  Country: IT (occurrence: IT)
  Receive Date: 20230224
  Receipt Date: 20230406
  Transmission Date: 20230721
  Serious: Yes (Death, Other)
  Sender: FDA-Public Use
  Company Number: IT-002147023-PHHY2019IT157164

PATIENT

DRUGS (2)
  1. RUXOLITINIB [Suspect]
     Active Substance: RUXOLITINIB
     Indication: Myelofibrosis
     Dosage: 40 UNK
     Route: 065
     Dates: start: 20180214
  2. RUXOLITINIB [Suspect]
     Active Substance: RUXOLITINIB
     Dosage: 20 MG, BID (LAST DOSE: 27 JUN 2022)
     Route: 048
     Dates: start: 20180214

REACTIONS (4)
  - Second primary malignancy [Fatal]
  - Squamous cell carcinoma [Fatal]
  - Metastases to lymph nodes [Unknown]
  - Pharyngitis [Unknown]

NARRATIVE: CASE EVENT DATE: 20181101
